FAERS Safety Report 5952061-6 (Version None)
Quarter: 2008Q4

REPORT INFORMATION
  Report Type: 
  Country: None (occurrence: None)
  Receive Date: 20081113
  Receipt Date: 20080212
  Transmission Date: 20090506
  Serious: No
  Sender: FDA-Public Use
  Company Number: A0709123A

PATIENT
  Age: 49 Year
  Sex: Female

DRUGS (10)
  1. COREG [Suspect]
     Dosage: 3.125MG TWICE PER DAY
     Route: 048
     Dates: start: 20071227
  2. INSULIN [Concomitant]
  3. ALLEGRA [Concomitant]
  4. QUINAPRIL [Concomitant]
  5. SPIRONOLACTONE [Concomitant]
  6. LASIX [Concomitant]
  7. UNKNOWN MEDICATION [Concomitant]
  8. FLEXERIL [Concomitant]
  9. HYDROCODONE [Concomitant]
  10. LIPITOR [Concomitant]

REACTIONS (4)
  - ASTHENIA [None]
  - DEPRESSION [None]
  - DIZZINESS [None]
  - DYSPNOEA [None]
